FAERS Safety Report 5054245-0 (Version None)
Quarter: 2006Q3

REPORT INFORMATION
  Report Type: 
  Country: None (occurrence: None)
  Receive Date: 20060718
  Receipt Date: 20060515
  Transmission Date: 20061208
  Serious: Yes (Life-Threatening, Hospitalization, Disabling)
  Sender: FDA-Public Use
  Company Number: US-SANOFI-SYNTHELABO-A03200603058

PATIENT
  Age: 70 Year
  Sex: Female
  Weight: 80 kg

DRUGS (3)
  1. LEUCOVORIN CALCIUM [Suspect]
     Indication: COLON CANCER
     Route: 042
     Dates: start: 20060509, end: 20060509
  2. FLUOROURACIL [Suspect]
     Indication: COLON CANCER
     Route: 042
     Dates: start: 20060509, end: 20060511
  3. OXALIPLATIN [Suspect]
     Indication: COLON CANCER
     Route: 042
     Dates: start: 20060509, end: 20060509

REACTIONS (4)
  - EJECTION FRACTION DECREASED [None]
  - PYREXIA [None]
  - RENAL FAILURE ACUTE [None]
  - VOMITING [None]
